FAERS Safety Report 8329336-9 (Version None)
Quarter: 2012Q2

REPORT INFORMATION
  Report Type: 
  Country: None (occurrence: None)
  Receive Date: 20120502
  Receipt Date: 20111109
  Transmission Date: 20120825
  Serious: No
  Sender: FDA-Public Use
  Company Number: US-ASTRAZENECA-2011SE67865

PATIENT
  Age: 67 Year
  Sex: Female
  Weight: 65.8 kg

DRUGS (1)
  1. FASLODEX [Suspect]
     Indication: BREAST CANCER
     Route: 030
     Dates: start: 20110601

REACTIONS (2)
  - DYSGEUSIA [None]
  - URINE ODOUR ABNORMAL [None]
